FAERS Safety Report 10077794 (Version 2)
Quarter: 2014Q2

REPORT INFORMATION
  Report Type: Spontaneous
  Country: US (occurrence: US)
  Receive Date: 20140414
  Receipt Date: 20140414
  Transmission Date: 20141212
  Serious: Yes (Hospitalization, Other)
  Sender: FDA-Public Use
  Company Number: US-AMGEN-USASP2013073978

PATIENT
  Age: 68 Year
  Sex: Female
  Weight: 58.41 kg

DRUGS (15)
  1. NEULASTA [Suspect]
     Indication: NEUTROPENIA
     Dosage: 4 MG, 1ST DOSE OF 2 WEEKS
     Route: 058
     Dates: start: 20131011
  2. 5 FU [Concomitant]
     Indication: COLORECTAL CANCER
     Dosage: 3325 MG, Q2WK
     Route: 042
     Dates: start: 20131009, end: 20131011
  3. 5 FU [Concomitant]
     Dosage: 550 MG, Q2WK
     Route: 042
     Dates: start: 20131009, end: 20131011
  4. OXALIPLATIN [Concomitant]
     Indication: COLORECTAL CANCER
     Dosage: 120 MG, Q2WK
     Route: 042
     Dates: start: 20131009, end: 20131011
  5. LEUCOVORIN                         /00566701/ [Concomitant]
     Indication: COLORECTAL CANCER
     Dosage: 550 MG, Q2WK
     Route: 042
     Dates: start: 20131009, end: 20131011
  6. ALOXI [Concomitant]
     Indication: COLORECTAL CANCER
     Dosage: 250 MG, Q2WK
     Route: 042
     Dates: start: 20131009, end: 20131011
  7. DECADRON                           /00016001/ [Concomitant]
     Indication: COLORECTAL CANCER
     Dosage: 8 MG, Q2WK
     Route: 042
     Dates: start: 20131009, end: 20131011
  8. CLARITIN                           /00917501/ [Concomitant]
     Dosage: UNK UNK, QD
     Route: 048
  9. ATIVAN [Concomitant]
     Indication: NAUSEA
     Dosage: 0.5 MG, Q4H PRN
     Route: 048
  10. ATIVAN [Concomitant]
     Indication: ANXIETY
  11. DEXAMETHASONE [Concomitant]
     Dosage: 0.5 MG/5ML SWISH AND SPIT 5ML 4 TIMES A DAY
     Route: 048
  12. ORABASE                            /00104701/ [Concomitant]
     Indication: MOUTH ULCERATION
     Dosage: 20 %, AS NECESSARY
  13. DIFLUCAN [Concomitant]
     Dosage: 100 MG, 2 PO ON DAY 1 THEN 1 PO DAILY
     Route: 048
  14. LIDOCAINE VISCOUS [Concomitant]
     Dosage: 10-15 CC, Q6H
     Route: 048
  15. PROCHLORPERAZINE MALEATE [Concomitant]
     Indication: NAUSEA
     Dosage: 1, 4 TIMES A DAY PRN
     Route: 048

REACTIONS (5)
  - Chest pain [Recovered/Resolved]
  - Bone pain [Unknown]
  - Joint stiffness [Recovered/Resolved]
  - Throat tightness [Recovered/Resolved]
  - Myalgia [Unknown]
